FAERS Safety Report 6162385-8 (Version None)
Quarter: 2009Q2

REPORT INFORMATION
  Report Type: 
  Country: None (occurrence: None)
  Receive Date: 20090421
  Receipt Date: 20090421
  Transmission Date: 20091009
  Serious: Yes (Hospitalization, Other)
  Sender: FDA-Public Use
  Company Number: US-PFIZER INC-2009181025

PATIENT
  Sex: Male
  Weight: 58 kg

DRUGS (12)
  1. CORTEF [Suspect]
     Indication: ADRENAL INSUFFICIENCY
  2. DEPAKOTE [Suspect]
     Dates: start: 20090303, end: 20090305
  3. DILAUDID [Concomitant]
  4. CLONIDINE [Concomitant]
  5. ASACOL [Concomitant]
  6. FLUOXETINE [Concomitant]
  7. ACIPHEX [Concomitant]
  8. DOMPERIDONE [Concomitant]
  9. ZEGERID [Concomitant]
  10. STRATTERA [Concomitant]
  11. NAMENDA [Concomitant]
  12. LEXAPRO [Concomitant]

REACTIONS (5)
  - ASTHENIA [None]
  - BLOOD CORTISOL DECREASED [None]
  - BLOOD SODIUM DECREASED [None]
  - CONVULSION [None]
  - HAEMOGLOBIN DECREASED [None]
